FAERS Safety Report 25272670 (Version 1)
Quarter: 2025Q2

REPORT INFORMATION
  Report Type: Other
  Country: ES (occurrence: ES)
  Receive Date: 20250506
  Receipt Date: 20250506
  Transmission Date: 20250716
  Serious: Yes (Hospitalization)
  Sender: STRIDES
  Company Number: None

PATIENT
  Age: 84 Year
  Sex: Male

DRUGS (5)
  1. GABAPENTIN [Suspect]
     Active Substance: GABAPENTIN
     Indication: Spinal osteoarthritis
     Route: 048
     Dates: start: 20200520, end: 20201029
  2. ALLOPURINOL [Concomitant]
     Active Substance: ALLOPURINOL
     Indication: Gout
     Route: 048
     Dates: start: 20130306
  3. LEVOTHYROXINE SODIUM [Concomitant]
     Active Substance: LEVOTHYROXINE SODIUM
     Indication: Hypothyroidism
     Route: 048
     Dates: start: 20140214
  4. LATANOPROST [Concomitant]
     Active Substance: LATANOPROST
     Indication: Open angle glaucoma
     Dates: start: 20191204
  5. IVABRADINE [Concomitant]
     Active Substance: IVABRADINE
     Indication: Myocardial ischaemia
     Route: 048
     Dates: start: 20180404

REACTIONS (4)
  - Neurological decompensation [Recovered/Resolved]
  - Depressed level of consciousness [Recovered/Resolved]
  - Myoclonic dystonia [Recovered/Resolved]
  - Somnolence [Recovered/Resolved]

NARRATIVE: CASE EVENT DATE: 20201028
